FAERS Safety Report 10601921 (Version 5)
Quarter: 2015Q3

REPORT INFORMATION
  Report Type: Report from Study
  Country: US (occurrence: US)
  Receive Date: 20141124
  Receipt Date: 20150828
  Transmission Date: 20151125
  Serious: Yes (Hospitalization)
  Sender: FDA-Public Use
  Company Number: US-SA-2014SA027371

PATIENT
  Age: 65 Year
  Sex: Female

DRUGS (5)
  1. ZOLOFT [Concomitant]
     Active Substance: SERTRALINE HYDROCHLORIDE
  2. HYDROCODONE [Concomitant]
     Active Substance: HYDROCODONE
     Indication: PAIN
  3. AUBAGIO [Suspect]
     Active Substance: TERIFLUNOMIDE
     Indication: MULTIPLE SCLEROSIS
     Route: 048
     Dates: start: 20140214
  4. THEOPHYLLINE [Concomitant]
     Active Substance: THEOPHYLLINE ANHYDROUS
  5. REBIF [Concomitant]
     Active Substance: INTERFERON BETA-1A
     Dates: start: 20020101, end: 20140212

REACTIONS (13)
  - Weight decreased [Unknown]
  - Abdominal pain upper [Unknown]
  - Hypertension [Recovered/Resolved]
  - Drug dose omission [Unknown]
  - Asthma [Unknown]
  - Abdominal hernia [Unknown]
  - Muscular weakness [Recovered/Resolved]
  - Hyperhidrosis [Unknown]
  - Fall [Unknown]
  - Rib fracture [Unknown]
  - Pyrexia [Unknown]
  - Hot flush [Unknown]
  - Eye disorder [Unknown]

NARRATIVE: CASE EVENT DATE: 2014
